FAERS Safety Report 8675723 (Version 2)
Quarter: 2013Q4

REPORT INFORMATION
  Report Type: Spontaneous
  Country: US (occurrence: US)
  Receive Date: 20120720
  Receipt Date: 20131101
  Transmission Date: 20140711
  Serious: No
  Sender: FDA-Public Use
  Company Number: US-009507513-1207USA007150

PATIENT
  Sex: Female

DRUGS (1)
  1. STROMECTOL [Suspect]
     Indication: LICE INFESTATION
     Dosage: UNK, UNK
     Route: 048
     Dates: start: 20120609

REACTIONS (3)
  - Paraesthesia [Unknown]
  - Pruritus [Unknown]
  - Off label use [Unknown]
